FAERS Safety Report 12630201 (Version 5)
Quarter: 2017Q2

REPORT INFORMATION
  Report Type: Spontaneous
  Country: FR (occurrence: FR)
  Receive Date: 20160808
  Receipt Date: 20170523
  Transmission Date: 20170830
  Serious: Yes (Other)
  Sender: FDA-Public Use
  Company Number: FR-CELGENEUS-FRA-2016080994

PATIENT
  Age: 63 Year
  Sex: Male
  Weight: 64 kg

DRUGS (17)
  1. REVLIMID [Suspect]
     Active Substance: LENALIDOMIDE
     Indication: PLASMA CELL MYELOMA
     Dosage: 5 MILLIGRAM
     Route: 048
     Dates: start: 20141027, end: 20160512
  2. DEXAMETHASONE. [Suspect]
     Active Substance: DEXAMETHASONE
     Route: 065
     Dates: start: 20071210, end: 200804
  3. DARATUMUMAB [Suspect]
     Active Substance: DARATUMUMAB
     Indication: PLASMA CELL MYELOMA
     Dosage: 1040 MILLIGRAM
     Route: 041
     Dates: start: 20141027
  4. CEFTRIAXONE. [Concomitant]
     Active Substance: CEFTRIAXONE
     Indication: RESPIRATORY TRACT INFECTION
     Route: 065
     Dates: start: 20160217, end: 20160223
  5. ADENURIC [Concomitant]
     Active Substance: FEBUXOSTAT
     Indication: RHEUMATOID ARTHRITIS
     Route: 065
     Dates: start: 200707, end: 20160603
  6. UN ALPHA [Concomitant]
     Active Substance: ALFACALCIDOL
     Indication: NUTRITIONAL SUPPLEMENTATION
     Route: 065
     Dates: start: 20160603, end: 20160603
  7. HYZENTRA [Concomitant]
     Indication: HYPOGAMMAGLOBULINAEMIA
     Route: 065
     Dates: start: 20151022, end: 20160603
  8. CRESTOR [Concomitant]
     Active Substance: ROSUVASTATIN CALCIUM
     Indication: PROPHYLAXIS
     Route: 065
     Dates: start: 20151022, end: 20160603
  9. KARDEGIC [Concomitant]
     Active Substance: ASPIRIN LYSINE
     Indication: THROMBOSIS PROPHYLAXIS
     Route: 065
     Dates: start: 20151217, end: 20160519
  10. PREDNISONE. [Concomitant]
     Active Substance: PREDNISONE
     Indication: RHEUMATOID ARTHRITIS
     Route: 065
     Dates: start: 20160318, end: 20160603
  11. EUPANTOL [Concomitant]
     Active Substance: PANTOPRAZOLE SODIUM
     Indication: PROPHYLAXIS
     Route: 065
     Dates: start: 20151217, end: 20160603
  12. DEXAMETHASONE. [Suspect]
     Active Substance: DEXAMETHASONE
     Indication: PLASMA CELL MYELOMA
     Route: 048
     Dates: start: 20141027
  13. DEXAMETHASONE. [Suspect]
     Active Substance: DEXAMETHASONE
     Route: 065
     Dates: start: 20130705, end: 20130926
  14. REVLIMID [Suspect]
     Active Substance: LENALIDOMIDE
     Dosage: 5 MILLIGRAM
     Route: 048
     Dates: start: 20130705, end: 20130926
  15. VALACICLOVIR [Concomitant]
     Active Substance: VALACYCLOVIR HYDROCHLORIDE
     Indication: INFECTION PROPHYLAXIS
     Route: 065
     Dates: start: 201307, end: 20160603
  16. REVLIMID [Suspect]
     Active Substance: LENALIDOMIDE
     Dosage: 5 MILLIGRAM
     Route: 048
     Dates: start: 200803, end: 200804
  17. EPOETIN ALFA [Concomitant]
     Active Substance: ERYTHROPOIETIN
     Indication: ANAEMIA
     Route: 065
     Dates: start: 20160114, end: 20160603

REACTIONS (1)
  - Bladder transitional cell carcinoma stage 0 [Recovered/Resolved]

NARRATIVE: CASE EVENT DATE: 20160223
